FAERS Safety Report 16203723 (Version 3)
Quarter: 2019Q2

REPORT INFORMATION
  Report Type: Report from Study
  Country: AU (occurrence: AU)
  Receive Date: 20190416
  Receipt Date: 20190603
  Transmission Date: 20190711
  Serious: Yes (Hospitalization, Other)
  Sender: FDA-Public Use
  Company Number: PHHY2018AU121153

PATIENT
  Age: 9 Year
  Sex: Female
  Weight: 33 kg

DRUGS (5)
  1. TRAMETINIB [Suspect]
     Active Substance: TRAMETINIB
     Dosage: 7 X 1.0MG, QW
     Route: 065
     Dates: start: 20181023
  2. TRAMETINIB [Suspect]
     Active Substance: TRAMETINIB
     Dosage: 1 MG, QD
     Route: 048
     Dates: start: 20181113
  3. TRAMETINIB [Suspect]
     Active Substance: TRAMETINIB
     Dosage: 10X0.5 MG, QW
     Route: 065
     Dates: start: 20181102
  4. TRAMETINIB [Suspect]
     Active Substance: TRAMETINIB
     Indication: ASTROCYTOMA, LOW GRADE
     Dosage: 1 MG, QD
     Route: 048
     Dates: start: 20180911
  5. TRAMETINIB [Suspect]
     Active Substance: TRAMETINIB
     Dosage: 0.5 MG, QD
     Route: 048

REACTIONS (10)
  - Blood creatine phosphokinase increased [Unknown]
  - Ingrowing nail [Recovered/Resolved]
  - Foot fracture [Recovered/Resolved]
  - Epistaxis [Unknown]
  - Diarrhoea [Unknown]
  - Abdominal pain [Unknown]
  - Blood alkaline phosphatase increased [Recovered/Resolved]
  - Rash [Unknown]
  - Blood magnesium decreased [Unknown]
  - Paronychia [Unknown]

NARRATIVE: CASE EVENT DATE: 20181114
